FAERS Safety Report 13760407 (Version 2)
Quarter: 2017Q3

REPORT INFORMATION
  Report Type: Spontaneous
  Country: IT (occurrence: IT)
  Receive Date: 20170717
  Receipt Date: 20170725
  Transmission Date: 20171127
  Serious: Yes (Other)
  Sender: FDA-Public Use
  Company Number: IT-MYLANLABS-2017M1041096

PATIENT

DRUGS (1)
  1. BRUFEN [Suspect]
     Active Substance: IBUPROFEN
     Indication: PRODUCT USED FOR UNKNOWN INDICATION
     Dosage: 600 MG, TOTAL
     Route: 048
     Dates: start: 20170115, end: 20170115

REACTIONS (3)
  - Hypotension [Recovered/Resolved]
  - Erythema [Recovered/Resolved]
  - Pruritus generalised [Recovered/Resolved]

NARRATIVE: CASE EVENT DATE: 20170115
